FAERS Safety Report 8155442-8 (Version None)
Quarter: 2012Q1

REPORT INFORMATION
  Report Type: 
  Country: None (occurrence: None)
  Receive Date: 20120203
  Receipt Date: 20120125
  Transmission Date: 20120608
  Serious: Yes (Other)
  Sender: FDA-Public Use
  Company Number: 2012030910

PATIENT
  Age: 45 Year
  Sex: Female

DRUGS (4)
  1. PRIVIGEN [Suspect]
     Indication: MYASTHENIA GRAVIS
     Dosage: 2 X 10 G
     Route: 042
     Dates: start: 20111215, end: 20111226
  2. SERETIDE /01420901/ (SERETIDE /01420901/) [Concomitant]
  3. RHINOCORT [Concomitant]
  4. PRAM (CITALOPRAM HYDROBROMIDE) [Concomitant]

REACTIONS (4)
  - INFUSION SITE SWELLING [None]
  - INFUSION SITE ERYTHEMA [None]
  - OFF LABEL USE [None]
  - INFUSION SITE PAIN [None]
